FAERS Safety Report 18899197 (Version 1)
Quarter: 2021Q1

REPORT INFORMATION
  Report Type: Spontaneous
  Country: US (occurrence: US)
  Receive Date: 20210216
  Receipt Date: 20210216
  Transmission Date: 20210420
  Serious: Yes (Hospitalization)
  Sender: FDA-Public Use
  Company Number: US-MYLANLABS-2021M1009656

PATIENT
  Age: 52 Year
  Sex: Male

DRUGS (2)
  1. VERAPAMIL [Suspect]
     Active Substance: VERAPAMIL HYDROCHLORIDE
     Indication: ANTERIOR SPINAL ARTERY SYNDROME
     Dosage: 5 MILLIGRAM, TOTAL
     Route: 013
  2. EPTIFIBATIDE. [Suspect]
     Active Substance: EPTIFIBATIDE
     Indication: ANTERIOR SPINAL ARTERY SYNDROME
     Dosage: 6 MILLIGRAM, TOTAL
     Route: 013

REACTIONS (2)
  - Spinal subarachnoid haemorrhage [Unknown]
  - Off label use [Unknown]
